FAERS Safety Report 4924430-4 (Version None)
Quarter: 2006Q1

REPORT INFORMATION
  Report Type: 
  Country: None (occurrence: None)
  Receive Date: 20060227
  Receipt Date: 20051124
  Transmission Date: 20060701
  Serious: Yes (Life-Threatening, Hospitalization)
  Sender: FDA-Public Use
  Company Number: DE-ROCHE-426127

PATIENT
  Sex: Female
  Weight: 44 kg

DRUGS (9)
  1. XELODA [Suspect]
     Route: 048
     Dates: start: 20050927, end: 20051006
  2. XELODA [Suspect]
     Dosage: WITH ONE WEEK PAUSE
     Route: 048
     Dates: start: 20051108
  3. ESOMEPRAZOLE [Concomitant]
  4. VENLAFAXIN [Concomitant]
     Dosage: DRUG NAME: VENLAFAXIN RETARD
  5. FUROSEMIDE [Concomitant]
  6. PROMETHAZINE [Concomitant]
     Dosage: DOSAGE REPORTED AS 1 ML = 20 MG 0-0-0-30 DROPS.
  7. FENTANYL CITRATE [Concomitant]
     Dosage: UNIT: MCG/H
     Route: 062
  8. PREDNISONE [Concomitant]
  9. UREA CREAM [Concomitant]

REACTIONS (6)
  - ACUTE RESPIRATORY FAILURE [None]
  - AGITATION [None]
  - CACHEXIA [None]
  - CHRONIC OBSTRUCTIVE PULMONARY DISEASE [None]
  - DISORIENTATION [None]
  - HYPOTENSION [None]
